FAERS Safety Report 13558606 (Version 1)
Quarter: 2017Q2

REPORT INFORMATION
  Report Type: Spontaneous
  Country: US (occurrence: US)
  Receive Date: 20170518
  Receipt Date: 20170518
  Transmission Date: 20170830
  Serious: Yes (Other)
  Sender: FDA-Public Use
  Company Number: US-PFIZER INC-2017208733

PATIENT
  Age: 1 Year
  Sex: Female
  Weight: 11 kg

DRUGS (1)
  1. CEFEPIME HCL [Suspect]
     Active Substance: CEFEPIME HYDROCHLORIDE
     Indication: PYREXIA
     Dosage: UNK

REACTIONS (1)
  - Clostridium difficile colitis [Recovering/Resolving]
